FAERS Safety Report 6877532-X (Version None)
Quarter: 2010Q3

REPORT INFORMATION
  Report Type: 
  Country: None (occurrence: None)
  Receive Date: 20100727
  Receipt Date: 20100204
  Transmission Date: 20110219
  Serious: No
  Sender: FDA-Public Use
  Company Number: US-ABBOTT-10P-163-0624651-00

PATIENT
  Sex: Female
  Weight: 52.21 kg

DRUGS (5)
  1. SYNTHROID [Suspect]
     Indication: HYPOTHYROIDISM
     Dates: start: 20090501, end: 20090801
  2. SYNTHROID [Suspect]
     Dates: start: 20090801, end: 20090901
  3. SYNTHROID [Suspect]
     Dates: start: 20091001
  4. ESTROGEN [Concomitant]
     Indication: HORMONE REPLACEMENT THERAPY
  5. PROGESTERONE [Concomitant]
     Indication: HORMONE REPLACEMENT THERAPY

REACTIONS (4)
  - ALOPECIA [None]
  - APHONIA [None]
  - DRUG EFFECT DECREASED [None]
  - FATIGUE [None]
